FAERS Safety Report 9164432 (Version 1)
Quarter: 2013Q1

REPORT INFORMATION
  Report Type: Spontaneous
  Country: US (occurrence: US)
  Receive Date: 20130315
  Receipt Date: 20130315
  Transmission Date: 20140127
  Serious: Yes (Other)
  Sender: FDA-Public Use
  Company Number: US-TEVA-391159USA

PATIENT
  Sex: Female

DRUGS (3)
  1. CEFALEXIN [Suspect]
     Indication: OEDEMA PERIPHERAL
     Dosage: 1500 MILLIGRAM DAILY;
     Dates: start: 20130306
  2. CEFALEXIN [Suspect]
     Indication: ERYTHEMA
  3. CLOZARIL [Concomitant]
     Indication: SCHIZOAFFECTIVE DISORDER

REACTIONS (1)
  - Vaginal haemorrhage [Unknown]
